FAERS Safety Report 24280313 (Version 1)
Quarter: 2024Q3

REPORT INFORMATION
  Report Type: Spontaneous
  Country: US (occurrence: US)
  Receive Date: 20240904
  Receipt Date: 20240904
  Transmission Date: 20241017
  Serious: Yes (Hospitalization)
  Sender: ELI LILLY AND CO
  Company Number: US-ELI_LILLY_AND_COMPANY-US202408015148

PATIENT
  Age: 91 Year

DRUGS (1)
  1. RETEVMO [Suspect]
     Active Substance: SELPERCATINIB
     Indication: Product used for unknown indication
     Dosage: 40 MG, UNKNOWN
     Route: 048
     Dates: start: 202406, end: 20240815

REACTIONS (2)
  - Blood sodium decreased [Recovered/Resolved]
  - Urinary tract infection [Not Recovered/Not Resolved]
